FAERS Safety Report 9280543 (Version 7)
Quarter: 2013Q3

REPORT INFORMATION
  Report Type: Spontaneous
  Country: IL (occurrence: IL)
  Receive Date: 20130509
  Receipt Date: 20130813
  Transmission Date: 20140515
  Serious: Yes (Other)
  Sender: FDA-Public Use
  Company Number: IL-SANOFI-AVENTIS-2013SA045348

PATIENT
  Age: 70 Year
  Sex: Female

DRUGS (8)
  1. ARAVA [Suspect]
     Indication: RHEUMATOID ARTHRITIS
     Route: 065
     Dates: start: 201207
  2. ARAVA [Suspect]
     Indication: RHEUMATOID ARTHRITIS
     Route: 048
     Dates: end: 201302
  3. ASPIRIN [Concomitant]
     Route: 065
  4. NORVASC [Concomitant]
     Route: 065
  5. LOSEC [Concomitant]
     Route: 065
  6. RYTHMICAL [Concomitant]
     Route: 065
  7. VITAMIN D [Concomitant]
     Route: 065
  8. NORMITEN [Concomitant]
     Route: 065

REACTIONS (5)
  - Blood pressure abnormal [Recovered/Resolved]
  - Hyperglycaemia [Recovered/Resolved]
  - Neutropenia [Not Recovered/Not Resolved]
  - Weight decreased [Recovered/Resolved]
  - Leukopenia [Not Recovered/Not Resolved]
